FAERS Safety Report 17307521 (Version 1)
Quarter: 2020Q1

REPORT INFORMATION
  Report Type: Spontaneous
  Country: US (occurrence: US)
  Receive Date: 20200106
  Receipt Date: 20200106
  Transmission Date: 20200409
  Serious: Yes (Life-Threatening)
  Sender: FDA-Public Use
  Company Number: None

PATIENT
  Age: 38 Year
  Sex: Female

DRUGS (2)
  1. IRON SUCROSE (IRON SUCROSE 20MG/ML INJ) [Suspect]
     Active Substance: IRON SUCROSE
     Indication: IRON DEFICIENCY ANAEMIA
     Route: 042
     Dates: start: 20191010, end: 20191030
  2. IRON SUCROSE (IRON SUCROSE 20MG/ML INJ) [Suspect]
     Active Substance: IRON SUCROSE

REACTIONS (1)
  - Angioedema [None]

NARRATIVE: CASE EVENT DATE: 20191030
